FAERS Safety Report 9234443 (Version 2)
Quarter: 2014Q1

REPORT INFORMATION
  Report Type: Report from Study
  Country: US (occurrence: US)
  Receive Date: 20130416
  Receipt Date: 20140124
  Transmission Date: 20141002
  Serious: Yes (Hospitalization)
  Sender: FDA-Public Use
  Company Number: US-ALEXION PHARMACEUTICALS INC.-A201300581

PATIENT
  Age: 6 Month
  Sex: Male
  Weight: 7.6 kg

DRUGS (1)
  1. SOLIRIS [Suspect]
     Indication: HAEMOLYTIC URAEMIC SYNDROME
     Dosage: 300 MG Q2W
     Route: 042

REACTIONS (2)
  - Device related infection [Recovered/Resolved]
  - Haemoglobin decreased [Unknown]
